FAERS Safety Report 25123429 (Version 1)
Quarter: 2025Q1

REPORT INFORMATION
  Report Type: Spontaneous
  Country: US (occurrence: US)
  Receive Date: 20250326
  Receipt Date: 20250326
  Transmission Date: 20250409
  Serious: No
  Sender: GRIFOLS
  Company Number: US-IGSA-BIG0027760

PATIENT
  Age: 73 Year
  Sex: Female
  Weight: 103.86 kg

DRUGS (39)
  1. PROLASTIN-C LIQUID [Suspect]
     Active Substance: .ALPHA.1-PROTEINASE INHIBITOR HUMAN
     Indication: Alpha-1 antitrypsin deficiency
     Route: 042
     Dates: start: 20240130, end: 20240130
  2. PROLASTIN-C LIQUID [Suspect]
     Active Substance: .ALPHA.1-PROTEINASE INHIBITOR HUMAN
     Route: 042
     Dates: start: 20240206, end: 20240206
  3. PROLASTIN-C LIQUID [Suspect]
     Active Substance: .ALPHA.1-PROTEINASE INHIBITOR HUMAN
     Route: 042
     Dates: start: 20240213, end: 20240213
  4. PROLASTIN-C LIQUID [Suspect]
     Active Substance: .ALPHA.1-PROTEINASE INHIBITOR HUMAN
     Dosage: 9450 MILLIGRAM, Q.WK.
     Route: 042
     Dates: start: 20210603
  5. PROLASTIN-C LIQUID [Suspect]
     Active Substance: .ALPHA.1-PROTEINASE INHIBITOR HUMAN
     Dosage: 9450 MILLIGRAM, Q.WK.
     Route: 042
     Dates: start: 202005
  6. PROLASTIN-C LIQUID [Suspect]
     Active Substance: .ALPHA.1-PROTEINASE INHIBITOR HUMAN
     Dosage: 9270 MILLIGRAM, Q.WK.
     Route: 042
  7. BUMETANIDE [Concomitant]
     Active Substance: BUMETANIDE
  8. CITALOPRAM [Concomitant]
     Active Substance: CITALOPRAM
  9. CYANOCOBALAMIN [Concomitant]
     Active Substance: CYANOCOBALAMIN
  10. DOCUSATE [Concomitant]
     Active Substance: DOCUSATE
  11. HYDROXYZINE [Concomitant]
     Active Substance: HYDROXYZINE HYDROCHLORIDE
  12. HYOSCYAMINE [Concomitant]
     Active Substance: HYOSCYAMINE
  13. ISOSORBIDE [Concomitant]
     Active Substance: ISOSORBIDE
  14. METOPROLOL [Concomitant]
     Active Substance: METOPROLOL
  15. MUPIROCIN [Concomitant]
     Active Substance: MUPIROCIN
  16. NITROGLYCERIN [Concomitant]
     Active Substance: NITROGLYCERIN
  17. ONDANSETRON [Concomitant]
     Active Substance: ONDANSETRON
  18. OXYCODONE [Concomitant]
     Active Substance: OXYCODONE
  19. SPIRONOLACTONE [Concomitant]
     Active Substance: SPIRONOLACTONE
  20. SYMBICORT [Concomitant]
     Active Substance: BUDESONIDE\FORMOTEROL FUMARATE DIHYDRATE
  21. TESSALON [Concomitant]
     Active Substance: BENZONATATE
  22. TRAMADOL [Concomitant]
     Active Substance: TRAMADOL
  23. CHOLECALCIFEROL [Concomitant]
     Active Substance: CHOLECALCIFEROL
  24. TYLENOL EXTRA STRENGTH [Concomitant]
     Active Substance: ACETAMINOPHEN
  25. FUROSEMIDE [Concomitant]
     Active Substance: FUROSEMIDE
     Route: 048
  26. BUDESONIDE\FORMOTEROL FUMARATE [Concomitant]
     Active Substance: BUDESONIDE\FORMOTEROL FUMARATE
  27. MONTELUKAST SODIUM [Concomitant]
     Active Substance: MONTELUKAST SODIUM
     Route: 048
  28. PROMETHAZINE HYDROCHLORIDE [Concomitant]
     Active Substance: PROMETHAZINE HYDROCHLORIDE
     Route: 048
  29. TOPIRAMATE [Concomitant]
     Active Substance: TOPIRAMATE
     Route: 048
  30. NAPROXEN [Concomitant]
     Active Substance: NAPROXEN
     Route: 048
  31. EPINEPHRINE [Concomitant]
     Active Substance: EPINEPHRINE
     Route: 030
  32. DIPHENHYDRAMINE HYDROCHLORIDE [Concomitant]
     Active Substance: DIPHENHYDRAMINE HYDROCHLORIDE
  33. HEPARIN [Concomitant]
     Active Substance: HEPARIN SODIUM
  34. LIDOCAINE\PRILOCAINE [Concomitant]
     Active Substance: LIDOCAINE\PRILOCAINE
  35. SODIUM CHLORIDE [Concomitant]
     Active Substance: SODIUM CHLORIDE
  36. GABAPENTIN [Concomitant]
     Active Substance: GABAPENTIN
  37. STOOL SOFTENER (DOCUSATE) [Concomitant]
     Active Substance: DOCUSATE
  38. METOPROLOL SUCCINATE [Concomitant]
     Active Substance: METOPROLOL SUCCINATE
  39. NITROGLYCERIN [Concomitant]
     Active Substance: NITROGLYCERIN

REACTIONS (2)
  - Chills [Unknown]
  - Nausea [Unknown]

NARRATIVE: CASE EVENT DATE: 20240130
